FAERS Safety Report 17128828 (Version 1)
Quarter: 2019Q4

REPORT INFORMATION
  Report Type: Spontaneous
  Country: US (occurrence: US)
  Receive Date: 20191206
  Receipt Date: 20191206
  Transmission Date: 20200122
  Serious: Yes (Life-Threatening)
  Sender: FDA-Public Use
  Company Number: None

PATIENT
  Age: 6 Month
  Sex: Male
  Weight: 7.7 kg

DRUGS (1)
  1. SYNAGIS [Suspect]
     Active Substance: PALIVIZUMAB
     Indication: ANTIVIRAL PROPHYLAXIS
     Dosage: ?          OTHER FREQUENCY:ONCE;?
     Route: 030
     Dates: start: 20191127, end: 20191127

REACTIONS (7)
  - Septic shock [None]
  - Pseudomonas infection [None]
  - Hepatic embolisation [None]
  - Disseminated intravascular coagulation [None]
  - Diarrhoea [None]
  - Mesenteric vein thrombosis [None]
  - Hepatic failure [None]

NARRATIVE: CASE EVENT DATE: 20191202
